FAERS Safety Report 21131868 (Version 2)
Quarter: 2022Q3

REPORT INFORMATION
  Report Type: Spontaneous
  Country: PL (occurrence: None)
  Receive Date: 20220726
  Receipt Date: 20220902
  Transmission Date: 20221027
  Serious: Yes (Other)
  Sender: FDA-Public Use
  Company Number: PL-ROCHE-3143752

PATIENT

DRUGS (2)
  1. KADCYLA [Suspect]
     Active Substance: ADO-TRASTUZUMAB EMTANSINE
     Indication: Invasive lobular breast carcinoma
     Route: 065
  2. HERCEPTIN [Suspect]
     Active Substance: TRASTUZUMAB
     Indication: Product used for unknown indication
     Route: 065

REACTIONS (8)
  - Epistaxis [Unknown]
  - COVID-19 [Unknown]
  - Neuropathy peripheral [Unknown]
  - Palpitations [Unknown]
  - Ill-defined disorder [Unknown]
  - Vision blurred [Unknown]
  - Headache [Unknown]
  - Diarrhoea [Unknown]
